FAERS Safety Report 10211755 (Version 1)
Quarter: 2014Q2

REPORT INFORMATION
  Report Type: Spontaneous
  Country: IN (occurrence: None)
  Receive Date: 20140528
  Receipt Date: 20140528
  Transmission Date: 20141212
  Serious: Yes (Hospitalization)
  Sender: FDA-Public Use
  Company Number: 153148

PATIENT
  Age: 32 Year
  Sex: Male

DRUGS (1)
  1. PROPRANOLOL HYROCHLORIDE [Suspect]
     Indication: SUICIDAL IDEATION

REACTIONS (4)
  - Overdose [None]
  - Haemoperfusion [None]
  - Toxicity to various agents [None]
  - Suicidal ideation [None]
